FAERS Safety Report 13696878 (Version 2)
Quarter: 2017Q3

REPORT INFORMATION
  Report Type: Spontaneous
  Country: US (occurrence: US)
  Receive Date: 20170628
  Receipt Date: 20170815
  Transmission Date: 20171127
  Serious: Yes (Hospitalization)
  Sender: FDA-Public Use
  Company Number: US-BAUSCH-BL-2017-019929

PATIENT
  Age: 64 Year
  Sex: Female

DRUGS (7)
  1. AMLODIPINE BESYLATE. [Concomitant]
     Active Substance: AMLODIPINE BESYLATE
     Indication: BLOOD PRESSURE ABNORMAL
  2. INSULIN [Concomitant]
     Active Substance: INSULIN NOS
     Indication: DIABETES MELLITUS
  3. CODEINE SULPHATE [Concomitant]
     Active Substance: CODEINE SULFATE
     Indication: DIARRHOEA
  4. XIFAXAN [Suspect]
     Active Substance: RIFAXIMIN
     Route: 048
     Dates: start: 20170809
  5. XIFAXAN [Suspect]
     Active Substance: RIFAXIMIN
     Indication: GASTRIC INFECTION
     Route: 048
     Dates: start: 20170509, end: 20170522
  6. XIFAXAN [Suspect]
     Active Substance: RIFAXIMIN
     Indication: DIARRHOEA
     Route: 048
     Dates: start: 20170609, end: 20170622
  7. CLONIDINE. [Concomitant]
     Active Substance: CLONIDINE
     Indication: BLOOD PRESSURE ABNORMAL

REACTIONS (3)
  - Colitis [Recovered/Resolved]
  - Sepsis [Recovered/Resolved]
  - Off label use [Unknown]

NARRATIVE: CASE EVENT DATE: 20170509
